FAERS Safety Report 7715848-5 (Version None)
Quarter: 2011Q3

REPORT INFORMATION
  Report Type: 
  Country: None (occurrence: None)
  Receive Date: 20110829
  Receipt Date: 20110829
  Transmission Date: 20111222
  Serious: Yes (Life-Threatening, Hospitalization)
  Sender: FDA-Public Use
  Company Number: None

PATIENT
  Sex: Female
  Weight: 44.905 kg

DRUGS (1)
  1. VIOXX [Suspect]
     Indication: PRODUCT USED FOR UNKNOWN INDICATION
     Dates: start: 20001001, end: 20010105

REACTIONS (2)
  - PRODUCT QUALITY ISSUE [None]
  - CEREBROVASCULAR ACCIDENT [None]
